FAERS Safety Report 4344789-9 (Version None)
Quarter: 2004Q2

REPORT INFORMATION
  Report Type: 
  Country: None (occurrence: None)
  Receive Date: 20040420
  Receipt Date: 20040406
  Transmission Date: 20050107
  Serious: Yes (Hospitalization)
  Sender: FDA-Public Use
  Company Number: US-JNJFOC-20040401317

PATIENT
  Age: 50 Year
  Sex: Female
  Weight: 149.687 kg

DRUGS (6)
  1. INFLIXIMAB (INFLIXIMAB, RECOMBINANT) LYOPHILIZED POWDER [Suspect]
     Indication: RHEUMATOID ARTHRITIS
     Dosage: INTRAVENOUS
     Route: 042
     Dates: start: 20010814
  2. CLONAZEPAM [Concomitant]
  3. HYDROCHLOROTHIAZIDE [Concomitant]
  4. SYNTHROID [Concomitant]
  5. TYLENOL [Concomitant]
  6. BEXTRA [Concomitant]

REACTIONS (6)
  - DYSPNOEA [None]
  - ECHOCARDIOGRAM ABNORMAL [None]
  - JOINT ARTHROPLASTY [None]
  - OXYGEN SATURATION DECREASED [None]
  - THROMBOSIS [None]
  - VENTILATION/PERFUSION SCAN ABNORMAL [None]
